FAERS Safety Report 15343757 (Version 1)
Quarter: 2018Q3

REPORT INFORMATION
  Report Type: Spontaneous
  Country: US (occurrence: US)
  Receive Date: 20180903
  Receipt Date: 20180903
  Transmission Date: 20181010
  Serious: Yes (Other)
  Sender: FDA-Public Use
  Company Number: US-HIKMA PHARMACEUTICALS USA INC.-US-H14001-18-07190

PATIENT
  Age: 66 Year
  Sex: Male

DRUGS (12)
  1. CETUXIMAB. [Suspect]
     Active Substance: CETUXIMAB
     Indication: ADENOCARCINOMA OF COLON
  2. IRINOTECAN [Suspect]
     Active Substance: IRINOTECAN
     Indication: LYMPHANGIOSIS CARCINOMATOSA
  3. FLUOROURACIL. [Suspect]
     Active Substance: FLUOROURACIL
     Indication: METASTASES TO LUNG
  4. CETUXIMAB. [Suspect]
     Active Substance: CETUXIMAB
     Indication: LYMPHANGIOSIS CARCINOMATOSA
  5. FOLINIC ACID [Suspect]
     Active Substance: LEUCOVORIN
     Indication: LYMPHANGIOSIS CARCINOMATOSA
  6. FOLINIC ACID [Suspect]
     Active Substance: LEUCOVORIN
     Indication: ADENOCARCINOMA OF COLON
  7. IRINOTECAN [Suspect]
     Active Substance: IRINOTECAN
     Indication: METASTASES TO LUNG
  8. FLUOROURACIL. [Suspect]
     Active Substance: FLUOROURACIL
     Indication: ADENOCARCINOMA OF COLON
  9. CETUXIMAB. [Suspect]
     Active Substance: CETUXIMAB
     Indication: METASTASES TO LUNG
     Dosage: ()CYCLICAL
     Route: 065
  10. FOLINIC ACID [Suspect]
     Active Substance: LEUCOVORIN
     Indication: METASTASES TO LUNG
     Dosage: ()CYCLICAL
     Route: 065
  11. IRINOTECAN [Suspect]
     Active Substance: IRINOTECAN
     Indication: ADENOCARCINOMA OF COLON
     Dosage: ()CYCLICAL
     Route: 065
  12. FLUOROURACIL. [Suspect]
     Active Substance: FLUOROURACIL
     Indication: LYMPHANGIOSIS CARCINOMATOSA
     Dosage: ()CYCLICAL
     Route: 065

REACTIONS (5)
  - Alopecia [Unknown]
  - Rash pustular [Unknown]
  - Hypomagnesaemia [Unknown]
  - Fatigue [Unknown]
  - Conjunctivitis [Unknown]
